FAERS Safety Report 9504000 (Version 1)
Quarter: 2013Q1

REPORT INFORMATION
  Report Type: Spontaneous
  Country: US (occurrence: None)
  Receive Date: 20130107
  Receipt Date: 20130107
  Transmission Date: 20140127
  Serious: No
  Sender: FDA-Public Use
  Company Number: PHEH2012US018769

PATIENT
  Age: 35 Year
  Sex: Female
  Weight: 51.7 kg

DRUGS (2)
  1. GILENYA [Suspect]
     Indication: MULTIPLE SCLEROSIS
     Route: 048
     Dates: start: 20120815
  2. XANAX (ALPRAZOLAM) [Concomitant]

REACTIONS (1)
  - Amenorrhoea [None]
